FAERS Safety Report 9177570 (Version 1)
Quarter: 2013Q1

REPORT INFORMATION
  Report Type: Spontaneous
  Country: US (occurrence: None)
  Receive Date: 20130315
  Receipt Date: 20130315
  Transmission Date: 20140127
  Serious: Yes (Other)
  Sender: FDA-Public Use
  Company Number: 2013-03603

PATIENT
  Age: 41 Year
  Sex: Female

DRUGS (3)
  1. LOSARTAN POTASSIUM [Suspect]
     Indication: HYPERTENSION
  2. GABAPENTIN (GABAPENTIN) [Concomitant]
  3. HYDROCHLOROTHIAZIDE (HYDROCHLOROTHIAZIDE) [Concomitant]

REACTIONS (5)
  - Oligohydramnios [None]
  - Hypotension [None]
  - Pre-eclampsia [None]
  - Caesarean section [None]
  - Exposure during pregnancy [None]
